FAERS Safety Report 9494401 (Version 1)
Quarter: 2013Q3

REPORT INFORMATION
  Report Type: Spontaneous
  Country: US (occurrence: None)
  Receive Date: 20130828
  Receipt Date: 20130828
  Transmission Date: 20140515
  Serious: Yes (Death, Hospitalization)
  Sender: FDA-Public Use
  Company Number: 2013-395

PATIENT
  Age: 50 Year
  Sex: Male

DRUGS (24)
  1. FAZACLO (CLOZAPINE, USP) ODT (ORAL DISINTEGRATING TABLET) [Suspect]
     Route: 048
     Dates: start: 20130814, end: 20130814
  2. CLOZAPINE [Suspect]
     Route: 048
     Dates: start: 20130814
  3. CLOZARIL (CLOZAPINE) [Suspect]
  4. INVEGA (PALIPERIDONE) [Concomitant]
  5. MAALOX (ALUMINIUM HYDROXIDE GEL, MAGNESIUM HYDROXIDE) [Concomitant]
  6. FENTANYL (FENTANYL CITRATE) INJECTION [Concomitant]
  7. HEPARIN FLUSH (HEPARIN SODIUM) [Concomitant]
  8. INSULIN (INSULIN PORCINE) [Concomitant]
  9. LAMICTAL (LAMOTRIGINE) [Concomitant]
  10. KEPPRA (LEVETIRACETAM) [Concomitant]
  11. MAGNESIUM SULFATE (MAGNESIUM SULFATE) [Concomitant]
  12. OMEPRAZOLE (OMEPRAZOLE) [Concomitant]
  13. ZOFRAN (ONDANSETRON HYDROCHLORIDE) [Concomitant]
  14. ZOSYN (PIPERACILLIN SODIUM, TAZOBACTAM SODIUM) [Concomitant]
  15. POTASSIUM CHLORIDE (POTASSIUM CHLORIDE) [Concomitant]
  16. SALINE (SODIUM CHLORIDE) [Concomitant]
  17. VECURONIUM (VECURONIUM BROMIDE) [Concomitant]
  18. CALCIUM CARBONATE (CALCIUM CARBONATE) [Concomitant]
  19. DILAUDID (HYDROMORPHONE HYDROCHLORIDE) [Concomitant]
  20. ATIVAN (LORAZEPAM) [Concomitant]
  21. COMPAZINE (PROCHLORPERAZINE EDISYLATE) [Concomitant]
  22. NOREPINEPHRINE (NOREPINEPHRINE HYDROCHLORIDE) [Concomitant]
  23. DEXTROSE (GLUCOSE), LEVULOSE (FRUCTOSE), PHOSPHORIC ACID [Concomitant]
  24. DEXTROSE IN LACTATED RINGER^S (CALCIUM CHLORIDE DIHYDRATE, GLUCOSE, POTASSIUM CHLORIDE, SODIUM CHLORIDE, SODIUM LACTATE) [Concomitant]

REACTIONS (6)
  - Pulseless electrical activity [None]
  - Aspiration [None]
  - Intestinal obstruction [None]
  - Dyspepsia [None]
  - Rales [None]
  - Respiratory arrest [None]
